FAERS Safety Report 7117109-4 (Version None)
Quarter: 2010Q4

REPORT INFORMATION
  Report Type: 
  Country: None (occurrence: None)
  Receive Date: 20101122
  Receipt Date: 20101115
  Transmission Date: 20110411
  Serious: Yes (Other)
  Sender: FDA-Public Use
  Company Number: US-PFIZER INC-2010148705

PATIENT
  Sex: Male

DRUGS (1)
  1. ZOLOFT [Suspect]
     Dosage: UNK
     Dates: start: 20100101

REACTIONS (4)
  - DEPRESSION [None]
  - DRUG SCREEN POSITIVE [None]
  - LETHARGY [None]
  - MEMORY IMPAIRMENT [None]
